FAERS Safety Report 25818683 (Version 1)
Quarter: 2025Q3

REPORT INFORMATION
  Report Type: Spontaneous
  Country: US (occurrence: None)
  Receive Date: 20250918
  Receipt Date: 20250918
  Transmission Date: 20251021
  Serious: Yes (Hospitalization)
  Sender: FDA-CTU
  Company Number: None

PATIENT
  Age: 51 Year
  Sex: Female
  Weight: 58.5 kg

DRUGS (1)
  1. AIMOVIG [Suspect]
     Active Substance: ERENUMAB-AOOE
     Indication: Migraine
     Route: 030
     Dates: start: 20250110, end: 20250310

REACTIONS (5)
  - Chest pain [None]
  - Dyspnoea [None]
  - Therapy interrupted [None]
  - Troponin increased [None]
  - Adverse drug reaction [None]

NARRATIVE: CASE EVENT DATE: 20250410
